FAERS Safety Report 19955135 (Version 2)
Quarter: 2021Q4

REPORT INFORMATION
  Report Type: Report from Study
  Country: US (occurrence: US)
  Receive Date: 20211013
  Receipt Date: 20211028
  Transmission Date: 20220303
  Serious: Yes (Hospitalization, Other)
  Sender: FDA-Public Use
  Company Number: US-MALLINCKRODT-T202103731

PATIENT
  Sex: Female
  Weight: 49 kg

DRUGS (5)
  1. CORTICOTROPIN [Suspect]
     Active Substance: CORTICOTROPIN
     Indication: Conjunctivitis allergic
     Dosage: 80 UNITS, EVERY 72 HOURS
     Route: 058
     Dates: start: 20210721, end: 202107
  2. CORTICOTROPIN [Suspect]
     Active Substance: CORTICOTROPIN
     Dosage: 80 UNITS, TWICE A WEEK
     Route: 058
     Dates: start: 20210728, end: 202109
  3. CORTICOTROPIN [Suspect]
     Active Substance: CORTICOTROPIN
     Dosage: 1ML, EVERY 72 HOURS
     Route: 058
     Dates: start: 20210808
  4. CORTICOTROPIN [Suspect]
     Active Substance: CORTICOTROPIN
     Dosage: UNK
     Route: 065
     Dates: end: 202109
  5. MUCINEX [Suspect]
     Active Substance: GUAIFENESIN
     Indication: Illness
     Dosage: UNK
     Route: 065
     Dates: start: 2021

REACTIONS (9)
  - Conjunctivitis allergic [Unknown]
  - Condition aggravated [Unknown]
  - Immunodeficiency [Unknown]
  - Pulmonary congestion [Unknown]
  - Eye inflammation [Unknown]
  - Inflammation [Unknown]
  - Illness [Unknown]
  - Bronchitis [Unknown]
  - Product dose omission issue [Recovered/Resolved]

NARRATIVE: CASE EVENT DATE: 20210101
